FAERS Safety Report 22531697 (Version 1)
Quarter: 2023Q2

REPORT INFORMATION
  Report Type: Spontaneous
  Country: GB (occurrence: GB)
  Receive Date: 20230607
  Receipt Date: 20230607
  Transmission Date: 20230722
  Serious: Yes (Other)
  Sender: FDA-Public Use
  Company Number: GB-MHRA-MED-202305311109145220-STPRB

PATIENT
  Age: 50 Year
  Sex: Male

DRUGS (1)
  1. OLANZAPINE [Suspect]
     Active Substance: OLANZAPINE
     Indication: Schizophrenia
     Dosage: 405 MG, 2/M
     Route: 048
     Dates: start: 20200616

REACTIONS (4)
  - Confusional state [Not Recovered/Not Resolved]
  - Agitation [Unknown]
  - Aggression [Unknown]
  - Dizziness [Unknown]

NARRATIVE: CASE EVENT DATE: 20230523
